FAERS Safety Report 5280073-7 (Version None)
Quarter: 2007Q1

REPORT INFORMATION
  Report Type: 
  Country: None (occurrence: None)
  Receive Date: 20070322
  Receipt Date: 20070307
  Transmission Date: 20070707
  Serious: Yes (Other)
  Sender: FDA-Public Use
  Company Number: 6030859

PATIENT
  Age: 39 Year
  Sex: Female

DRUGS (7)
  1. LEVOTHYROXINE SODIUM [Suspect]
     Indication: THYROIDITIS
     Dosage: 75 MCG (75 MCG, 1 D) ORAL
     Route: 048
     Dates: end: 20060101
  2. ENBREL [Suspect]
     Indication: ANKYLOSING SPONDYLITIS
     Dosage: 25 MG (25 MG, 2 IN 1 WK) SUBCUTANEOUS
     Route: 058
     Dates: start: 20060807, end: 20061023
  3. TRINORDIOL (TABLET) (ETHINYLESTRADIOL, LEVONORGESTREL) [Suspect]
     Indication: CONTRACEPTION
     Dosage: ORAL
     Route: 048
     Dates: end: 20060101
  4. RIFINAH (TABLET) (ISONIAZID, RIFAMPICIN) [Suspect]
     Indication: TUBERCULOSIS SKIN TEST POSITIVE
     Dosage: ORAL
     Route: 048
  5. BUTAZOLIDIN (TABLET) (PHYLBUTAZONE) [Suspect]
     Indication: DRUG USE FOR UNKNOWN INDICATION
     Dosage: 300 MG (300 MG, 1 D) ORAL
     Route: 048
     Dates: end: 20060101
  6. LEXOMIL (TABLET) (BROMAZEPAM) [Suspect]
     Indication: DRUG USE FOR UNKNOWN INDICATION
     Dosage: 1 DOSAGE FORMS (1 DOSAGE FORMS, 1 D) ORAL
     Route: 048
  7. MOPRAL (CAPSULE) (OMEPRAZOLE) [Suspect]
     Indication: DRUG USE FOR UNKNOWN INDICATION
     Dosage: 20 MG (20 MG, 1 D) ORAL
     Route: 048
     Dates: end: 20060101

REACTIONS (3)
  - DRUG INEFFECTIVE [None]
  - DRUG INTERACTION INHIBITION [None]
  - UNINTENDED PREGNANCY [None]
